FAERS Safety Report 7478761-7 (Version None)
Quarter: 2011Q2

REPORT INFORMATION
  Report Type: 
  Country: None (occurrence: None)
  Receive Date: 20110513
  Receipt Date: 20110503
  Transmission Date: 20111010
  Serious: Yes (Other)
  Sender: FDA-Public Use
  Company Number: US-ROCHE-769279

PATIENT
  Sex: Female
  Weight: 69.9 kg

DRUGS (7)
  1. ACTEMRA [Suspect]
     Indication: RHEUMATOID ARTHRITIS
     Dosage: FORM: INFUSION; RECEIVED ONE TIME
     Route: 042
     Dates: start: 20110321, end: 20110321
  2. METHOTREXATE [Concomitant]
     Indication: RHEUMATOID ARTHRITIS
     Route: 048
  3. PREDNISONE TAB [Concomitant]
     Indication: RHEUMATOID ARTHRITIS
     Route: 048
     Dates: start: 20080101
  4. LORCET-HD [Concomitant]
     Indication: PAIN
     Dosage: FREQUENCY: ^Q1Z0^ AS NEEDED
     Route: 048
     Dates: start: 20101213
  5. METHOTREXATE [Concomitant]
     Route: 048
     Dates: start: 20031117, end: 20110322
  6. INDOCIN [Concomitant]
     Indication: RHEUMATOID ARTHRITIS
     Dosage: DRUG: INDOCIN SR 75
     Route: 048
     Dates: start: 20070101
  7. PRISTIQ [Concomitant]

REACTIONS (11)
  - DIARRHOEA [None]
  - HYPERHIDROSIS [None]
  - ABDOMINAL PAIN UPPER [None]
  - ARTHRALGIA [None]
  - DIZZINESS [None]
  - FLUID RETENTION [None]
  - ERUCTATION [None]
  - ANXIETY [None]
  - DYSPNOEA [None]
  - PALPITATIONS [None]
  - DISORIENTATION [None]
